FAERS Safety Report 9586593 (Version 2)
Quarter: 2013Q4

REPORT INFORMATION
  Report Type: Spontaneous
  Country: US (occurrence: US)
  Receive Date: 20131003
  Receipt Date: 20131101
  Transmission Date: 20140711
  Serious: Yes (Other)
  Sender: FDA-Public Use
  Company Number: US-PFIZER INC-2013278234

PATIENT
  Sex: Female

DRUGS (2)
  1. IBUPROFEN [Suspect]
     Indication: ARTHRALGIA
     Dosage: UNK
  2. ACETYLSALICYLIC ACID [Suspect]
     Indication: ARTHRALGIA
     Dosage: UNK

REACTIONS (2)
  - Myocardial infarction [Unknown]
  - Drug hypersensitivity [Unknown]
